FAERS Safety Report 6354630-0 (Version None)
Quarter: 2009Q3

REPORT INFORMATION
  Report Type: 
  Country: None (occurrence: None)
  Receive Date: 20090914
  Receipt Date: 20090904
  Transmission Date: 20100115
  Serious: Yes (Hospitalization, Other)
  Sender: FDA-Public Use
  Company Number: US-ELI_LILLY_AND_COMPANY-US200909001279

PATIENT
  Sex: Female

DRUGS (13)
  1. FORTEO [Suspect]
     Dosage: UNK, UNK
     Dates: start: 20081001
  2. EVISTA [Suspect]
     Dosage: UNK, UNK
  3. CELEBREX [Concomitant]
  4. HYDROCHLOROTHIAZIDE [Concomitant]
  5. NEXIUM [Concomitant]
  6. CALCIUM                                 /N/A/ [Concomitant]
  7. VITAMIN D [Concomitant]
  8. LORTAB [Concomitant]
  9. CORDARONE [Concomitant]
  10. ROBAXIN [Concomitant]
  11. VITAMIN B1, PLAIN [Concomitant]
  12. NEURONTIN [Concomitant]
  13. MULTIVITAMIN                       /00831701/ [Concomitant]

REACTIONS (5)
  - ANAEMIA [None]
  - ASTHENIA [None]
  - PAIN [None]
  - PNEUMONIA [None]
  - URINARY TRACT INFECTION [None]
